FAERS Safety Report 17438882 (Version 1)
Quarter: 2020Q1

REPORT INFORMATION
  Report Type: Spontaneous
  Country: GB (occurrence: GB)
  Receive Date: 20200220
  Receipt Date: 20200220
  Transmission Date: 20200409
  Serious: Yes (Life-Threatening, Other)
  Sender: FDA-Public Use
  Company Number: GB-TEVA-2020-GB-1188114

PATIENT
  Age: 28 Year
  Sex: Female
  Weight: 60 kg

DRUGS (1)
  1. ESCITALOPRAM [Suspect]
     Active Substance: ESCITALOPRAM OXALATE
     Indication: DEPRESSION SUICIDAL
     Dosage: 10 MG
     Route: 048
     Dates: start: 20191001

REACTIONS (3)
  - Suicidal behaviour [Recovered/Resolved]
  - Suicidal ideation [Unknown]
  - Emotional poverty [Unknown]

NARRATIVE: CASE EVENT DATE: 20200121
